FAERS Safety Report 24392661 (Version 2)
Quarter: 2024Q4

REPORT INFORMATION
  Report Type: Spontaneous
  Country: US (occurrence: US)
  Receive Date: 20241003
  Receipt Date: 20241105
  Transmission Date: 20250115
  Serious: No
  Sender: MERCK
  Company Number: US-009507513-2410USA000384

PATIENT
  Sex: Male

DRUGS (7)
  1. WINREVAIR [Suspect]
     Active Substance: SOTATERCEPT-CSRK
     Indication: Product used for unknown indication
     Dosage: UNK
     Dates: start: 20240828, end: 2024
  2. WINREVAIR [Suspect]
     Active Substance: SOTATERCEPT-CSRK
     Dosage: UNK, MAINTENANCE DOSING
     Dates: start: 202409, end: 2024
  3. TREPROSTINIL [Suspect]
     Active Substance: TREPROSTINIL
     Indication: Pulmonary arterial hypertension
     Dosage: 96 ?G, QID (32?G + 64?G), QID
     Dates: start: 202306
  4. TYVASO DPI [Suspect]
     Active Substance: TREPROSTINIL
     Indication: Pulmonary arterial hypertension
     Dosage: 96 UG, QID (32 UG [+] 64 UG)
     Dates: start: 202306
  5. ADEMPAS [Concomitant]
     Active Substance: RIOCIGUAT
  6. OPSUMIT [Concomitant]
     Active Substance: MACITENTAN
  7. OXYGEN [Concomitant]
     Active Substance: OXYGEN
     Dosage: 6-8 LITER CONTINUOUS

REACTIONS (5)
  - Epistaxis [Recovered/Resolved]
  - Injection site pain [Recovered/Resolved]
  - Oedema [Recovering/Resolving]
  - Muscle spasms [Recovered/Resolved]
  - Back pain [Unknown]

NARRATIVE: CASE EVENT DATE: 20240101
